FAERS Safety Report 5415431-0 (Version None)
Quarter: 2007Q3

REPORT INFORMATION
  Report Type: 
  Country: None (occurrence: None)
  Receive Date: 20070815
  Receipt Date: 20070814
  Transmission Date: 20080115
  Serious: Yes (Death, Hospitalization)
  Sender: FDA-Public Use
  Company Number: ES-BRISTOL-MYERS SQUIBB COMPANY-13484183

PATIENT
  Age: 58 Year
  Sex: Male

DRUGS (7)
  1. CISPLATIN [Suspect]
     Indication: GASTRIC CANCER
     Route: 041
     Dates: start: 20060717, end: 20060717
  2. TS-1 [Suspect]
     Indication: GASTRIC CANCER
     Route: 048
     Dates: start: 20060717, end: 20060721
  3. DIANBEN [Concomitant]
     Indication: DIABETES MELLITUS
     Route: 048
  4. ULCERAL [Concomitant]
     Indication: PROPHYLAXIS AGAINST GASTROINTESTINAL ULCER
     Route: 048
     Dates: start: 20060601
  5. SPASMOCTYL [Concomitant]
     Indication: GASTROINTESTINAL PAIN
     Route: 048
  6. LEXATIN [Concomitant]
     Indication: ANXIETY
     Route: 048
     Dates: start: 20060601
  7. XUMADOL [Concomitant]
     Indication: ABDOMINAL PAIN
     Route: 048
     Dates: start: 20060601, end: 20060713

REACTIONS (3)
  - ASCITES [None]
  - GASTRIC HAEMORRHAGE [None]
  - RENAL FAILURE [None]
